FAERS Safety Report 11464847 (Version 2)
Quarter: 2015Q3

REPORT INFORMATION
  Report Type: Report from Study
  Country: FR (occurrence: FR)
  Receive Date: 20150906
  Receipt Date: 20150909
  Transmission Date: 20151125
  Serious: Yes (Death)
  Sender: FDA-Public Use
  Company Number: FR-BRISTOL-MYERS SQUIBB COMPANY-BMS-2015-057273

PATIENT
  Sex: Female
  Weight: 46 kg

DRUGS (13)
  1. ALPRAZOLAM. [Concomitant]
     Active Substance: ALPRAZOLAM
     Indication: ANXIETY
     Dosage: 1 TAB, TID
     Route: 048
     Dates: start: 20150630
  2. NIVOLUMAB [Suspect]
     Active Substance: NIVOLUMAB
     Indication: NON-SMALL CELL LUNG CANCER
     Dosage: 3 MG/KG, UNK
     Route: 065
     Dates: start: 20150810
  3. FUROSEMIDE. [Concomitant]
     Active Substance: FUROSEMIDE
     Indication: POLYURIA
     Dosage: 0.5 TAB, QD
     Route: 065
     Dates: start: 20150619
  4. PARACETAMOL [Concomitant]
     Active Substance: ACETAMINOPHEN
     Indication: PAIN
     Dosage: 1 TAB, Q6H
     Route: 065
     Dates: start: 20150218
  5. ESOMEPRAZOLE [Concomitant]
     Active Substance: ESOMEPRAZOLE
     Indication: GASTROOESOPHAGEAL REFLUX DISEASE
     Dosage: 1 TAB, QD
     Route: 048
     Dates: start: 20150218
  6. FORADIL [Concomitant]
     Active Substance: FORMOTEROL FUMARATE
     Indication: DYSPNOEA
     Dosage: 1 DF, BID
     Route: 048
     Dates: start: 20150625
  7. ACETAZOLAMIDE. [Concomitant]
     Active Substance: ACETAZOLAMIDE
     Indication: POLYURIA
     Dosage: 0.5 TAB, QD
     Route: 048
     Dates: start: 20150722
  8. FOLIC ACID. [Concomitant]
     Active Substance: FOLIC ACID
     Indication: PRODUCT USED FOR UNKNOWN INDICATION
     Dosage: 1 TAB, QD
     Route: 048
     Dates: start: 20150224
  9. METOPIMAZINE [Concomitant]
     Active Substance: METOPIMAZINE
     Indication: NAUSEA
     Dosage: 75 MG, TID
     Route: 048
     Dates: start: 20150810
  10. EPREX [Concomitant]
     Active Substance: ERYTHROPOIETIN
     Indication: ANAEMIA
     Dosage: 450 IU/KG, UNK
     Route: 058
     Dates: start: 20150810
  11. IVABRADINE [Concomitant]
     Active Substance: IVABRADINE
     Indication: ANGINA PECTORIS
     Dosage: 1 TAB, BID
     Route: 048
     Dates: start: 20150719
  12. ONDANSETRON [Concomitant]
     Active Substance: ONDANSETRON
     Indication: NAUSEA
     Dosage: 8 MG, BID
     Route: 048
     Dates: start: 20150810
  13. INNOHEP [Concomitant]
     Active Substance: TINZAPARIN SODIUM
     Indication: ANTICOAGULANT THERAPY
     Dosage: UNK
     Route: 058
     Dates: start: 20150219

REACTIONS (1)
  - Death [Fatal]
